FAERS Safety Report 19818160 (Version 10)
Quarter: 2023Q4

REPORT INFORMATION
  Report Type: Report from Study
  Country: US (occurrence: US)
  Receive Date: 20210911
  Receipt Date: 20231016
  Transmission Date: 20240109
  Serious: Yes (Hospitalization, Other)
  Sender: FDA-Public Use
  Company Number: US-SHIRE-US201942558AA

PATIENT
  Sex: Female

DRUGS (3)
  1. HUMAN IMMUNOGLOBULIN G [Suspect]
     Active Substance: HUMAN IMMUNOGLOBULIN G
     Indication: Primary immunodeficiency syndrome
     Dosage: 40 GRAM, Q4WEEKS
     Route: 042
     Dates: start: 20200107
  2. HUMAN IMMUNOGLOBULIN G [Suspect]
     Active Substance: HUMAN IMMUNOGLOBULIN G
     Indication: Immunodeficiency common variable
  3. ADDERALL XR [Suspect]
     Active Substance: AMPHETAMINE ASPARTATE\AMPHETAMINE SULFATE\DEXTROAMPHETAMINE SACCHARATE\DEXTROAMPHETAMINE SULFATE
     Indication: Product used for unknown indication
     Dosage: UNK
     Route: 065

REACTIONS (36)
  - Colitis [Unknown]
  - Renal failure [Unknown]
  - Pneumonia [Unknown]
  - Dehydration [Unknown]
  - Vomiting [Unknown]
  - Idiopathic intracranial hypertension [Unknown]
  - Blood potassium decreased [Unknown]
  - Cyst [Unknown]
  - Renal cyst [Unknown]
  - Ovarian cyst [Unknown]
  - Acne cystic [Unknown]
  - Fall [Unknown]
  - Depression [Unknown]
  - Insomnia [Unknown]
  - Insurance issue [Unknown]
  - Poor venous access [Unknown]
  - Mobility decreased [Unknown]
  - Arthritis [Unknown]
  - Spinal disorder [Unknown]
  - Limb injury [Unknown]
  - Spinal osteoarthritis [Unknown]
  - Neck pain [Unknown]
  - COVID-19 [Unknown]
  - Joint dislocation [Unknown]
  - Musculoskeletal discomfort [Unknown]
  - Arthralgia [Unknown]
  - Headache [Unknown]
  - Tremor [Unknown]
  - Pain [Unknown]
  - Pain in extremity [Unknown]
  - Anaemia [Unknown]
  - Balance disorder [Unknown]
  - Migraine [Unknown]
  - Product supply issue [Unknown]
  - Product dose omission issue [Unknown]
  - Incorrect dose administered [Unknown]
